FAERS Safety Report 17833696 (Version 1)
Quarter: 2020Q2

REPORT INFORMATION
  Report Type: Spontaneous
  Country: US (occurrence: US)
  Receive Date: 20200527
  Receipt Date: 20200527
  Transmission Date: 20200714
  Serious: Yes (Other)
  Sender: FDA-Public Use
  Company Number: None

PATIENT
  Age: 67 Year
  Sex: Female
  Weight: 73.5 kg

DRUGS (7)
  1. OMEPRAZOLE DAILY [Concomitant]
  2. OGIVRI [Suspect]
     Active Substance: TRASTUZUMAB-DKST
     Indication: HER2 POSITIVE BREAST CANCER
     Dosage: ?          OTHER FREQUENCY:Q 21 DAYS;?
     Route: 042
     Dates: start: 20200428, end: 20200428
  3. HEPARIN 100 UNITS/ML X 5 ML INUSAPORT FLUSH [Concomitant]
     Dates: start: 20200428, end: 20200428
  4. GABAPENTIN TID [Concomitant]
  5. CREON WITH FOOD [Concomitant]
  6. LISINOPRIL - HYDROCHLOROTHIAZINE DAILY [Concomitant]
  7. METOPROLOL DAILY [Concomitant]

REACTIONS (6)
  - Malaise [None]
  - Eructation [None]
  - Asthenia [None]
  - Pruritus [None]
  - Feeling abnormal [None]
  - Decreased appetite [None]

NARRATIVE: CASE EVENT DATE: 20200428
